FAERS Safety Report 20762722 (Version 2)
Quarter: 2022Q2

REPORT INFORMATION
  Report Type: Report from Study
  Country: US (occurrence: US)
  Receive Date: 20220428
  Receipt Date: 20220622
  Transmission Date: 20220721
  Serious: No
  Sender: FDA-Public Use
  Company Number: US-NOVARTISTESTPH-NVSC2022US096237

PATIENT
  Age: 64 Year
  Sex: Male

DRUGS (1)
  1. ENTRESTO [Suspect]
     Active Substance: SACUBITRIL\VALSARTAN
     Indication: Product used for unknown indication
     Dosage: 1 DOSAGE FORM, BID(97/103 MG)
     Route: 065
     Dates: start: 202103

REACTIONS (7)
  - Fluid retention [Unknown]
  - Arthralgia [Recovering/Resolving]
  - Road traffic accident [Recovering/Resolving]
  - Rotator cuff syndrome [Unknown]
  - Abdominal distension [Not Recovered/Not Resolved]
  - Weight increased [Unknown]
  - Product dose omission in error [Unknown]

NARRATIVE: CASE EVENT DATE: 20210301
